FAERS Safety Report 14317880 (Version 1)
Quarter: 2017Q4

REPORT INFORMATION
  Report Type: Spontaneous
  Country: US (occurrence: US)
  Receive Date: 20171222
  Receipt Date: 20171222
  Transmission Date: 20180321
  Serious: No
  Sender: FDA-Public Use
  Company Number: US-WEST-WARD PHARMACEUTICALS CORP.-US-H14001-17-02425

PATIENT
  Sex: Female

DRUGS (1)
  1. LITHIUM. [Suspect]
     Active Substance: LITHIUM
     Indication: BIPOLAR II DISORDER
     Route: 048
     Dates: start: 1987

REACTIONS (3)
  - Furuncle [Recovered/Resolved]
  - Blister [Recovered/Resolved]
  - Metabolic surgery [Unknown]

NARRATIVE: CASE EVENT DATE: 1987
